FAERS Safety Report 4784550-4 (Version None)
Quarter: 2005Q3

REPORT INFORMATION
  Report Type: 
  Country: None (occurrence: None)
  Receive Date: 20050930
  Receipt Date: 20050923
  Transmission Date: 20060218
  Serious: Yes (Life-Threatening, Hospitalization)
  Sender: FDA-Public Use
  Company Number: US-JNJFOC-20041105449

PATIENT
  Sex: Male
  Weight: 80.3 kg

DRUGS (7)
  1. NATRECOR [Suspect]
     Route: 042
  2. NATRECOR [Suspect]
     Route: 042
  3. ATROVASTATIN [Concomitant]
     Route: 048
  4. FUROSEMIDE [Concomitant]
     Route: 042
  5. LISINOPRIL [Concomitant]
     Route: 048
  6. NITROGLYCERIN [Concomitant]
     Indication: CHEST PAIN
     Route: 060
  7. HEPARIN [Concomitant]
     Indication: ANTICOAGULANT THERAPY
     Route: 042

REACTIONS (8)
  - CARDIAC ARREST [None]
  - CARDIOMYOPATHY [None]
  - CORONARY ARTERY STENOSIS [None]
  - DEMENTIA [None]
  - SINUS BRADYCARDIA [None]
  - VASCULAR ENCEPHALOPATHY [None]
  - VENTRICULAR FIBRILLATION [None]
  - VENTRICULAR TACHYCARDIA [None]
